FAERS Safety Report 17921246 (Version 1)
Quarter: 2020Q2

REPORT INFORMATION
  Report Type: Report from Study
  Country: CN (occurrence: CN)
  Receive Date: 20200622
  Receipt Date: 20200622
  Transmission Date: 20200714
  Serious: Yes (Other)
  Sender: FDA-Public Use
  Company Number: CN-SUN PHARMACEUTICAL INDUSTRIES LTD-2020R1-250480

PATIENT
  Age: 44 Year
  Sex: Female

DRUGS (4)
  1. GEMCITABINE. [Suspect]
     Active Substance: GEMCITABINE
     Indication: NATURAL KILLER-CELL LYMPHOBLASTIC LYMPHOMA
     Dosage: UNK
     Route: 042
  2. CISPLATIN. [Suspect]
     Active Substance: CISPLATIN
     Indication: NATURAL KILLER-CELL LYMPHOBLASTIC LYMPHOMA
     Dosage: UNK
     Route: 042
  3. DEXAMETHASONE. [Suspect]
     Active Substance: DEXAMETHASONE
     Indication: NATURAL KILLER-CELL LYMPHOBLASTIC LYMPHOMA
     Dosage: UNK
     Route: 042
  4. PEG/L-ASPARAGINASE [Suspect]
     Active Substance: PEGASPARGASE
     Indication: NATURAL KILLER-CELL LYMPHOBLASTIC LYMPHOMA
     Dosage: UNK
     Route: 030

REACTIONS (1)
  - Disease recurrence [Unknown]
